FAERS Safety Report 25951970 (Version 2)
Quarter: 2025Q4

REPORT INFORMATION
  Report Type: Report from Study
  Country: TR (occurrence: TR)
  Receive Date: 20251023
  Receipt Date: 20251121
  Transmission Date: 20260118
  Serious: No
  Sender: MYLAN
  Company Number: TR-MYLANLABS-2025M1088880

PATIENT
  Age: 42 Year
  Sex: Female

DRUGS (1)
  1. CLOZAPINE [Suspect]
     Active Substance: CLOZAPINE
     Dosage: 100 MILLIGRAM, QD
     Dates: end: 2015

REACTIONS (1)
  - No adverse event [Recovered/Resolved]
